FAERS Safety Report 9482729 (Version 2)
Quarter: 2013Q3

REPORT INFORMATION
  Report Type: Spontaneous
  Country: FR (occurrence: FR)
  Receive Date: 20130828
  Receipt Date: 20130910
  Transmission Date: 20140515
  Serious: Yes (Life-Threatening, Other)
  Sender: FDA-Public Use
  Company Number: FR-MERCK-1308FRA008306

PATIENT
  Age: 73 Year
  Sex: Female

DRUGS (9)
  1. COZAAR 50 MG, COMPRIM? PELLICUL? [Suspect]
     Indication: HYPERTENSION
     Dosage: UNK
  2. PREVISCAN [Suspect]
     Indication: PHLEBITIS
     Dosage: UNK
     Route: 048
     Dates: start: 201302, end: 20130608
  3. DEPAKOTE [Suspect]
     Indication: BIPOLAR DISORDER
     Dosage: UNK
     Route: 048
  4. ZYPREXA [Suspect]
     Indication: BIPOLAR DISORDER
     Dosage: UNK
     Route: 048
  5. LUDIOMIL [Suspect]
     Indication: DEPRESSION
     Dosage: UNK
     Route: 048
  6. KARDEGIC [Suspect]
     Indication: VASCULAR DEMENTIA
     Dosage: UNK
     Route: 065
     Dates: end: 20130608
  7. INEXIUM [Suspect]
     Indication: GASTROOESOPHAGEAL REFLUX DISEASE
  8. CERIS [Suspect]
     Indication: URINARY INCONTINENCE
     Route: 048
  9. DOLIPRANE [Suspect]
     Indication: PAIN
     Dosage: UNK
     Route: 048
     Dates: start: 201302

REACTIONS (5)
  - Shock haemorrhagic [Recovered/Resolved with Sequelae]
  - International normalised ratio increased [Recovered/Resolved]
  - Haematemesis [Recovered/Resolved]
  - Anaemia [Recovered/Resolved]
  - Oesophageal ulcer [Recovered/Resolved]
